FAERS Safety Report 18447345 (Version 2)
Quarter: 2020Q4

REPORT INFORMATION
  Report Type: Spontaneous
  Country: JP (occurrence: JP)
  Receive Date: 20201030
  Receipt Date: 20201118
  Transmission Date: 20210114
  Serious: Yes (Hospitalization, Other)
  Sender: FDA-Public Use
  Company Number: JP-ASTRAZENECA-2020SF40134

PATIENT
  Age: 69 Year
  Sex: Male

DRUGS (4)
  1. RAMELTEON [Concomitant]
     Active Substance: RAMELTEON
     Indication: INSOMNIA
     Route: 048
  2. FORXIGA [Suspect]
     Active Substance: DAPAGLIFLOZIN
     Indication: TYPE 2 DIABETES MELLITUS
     Route: 048
  3. JANUVIA [Concomitant]
     Active Substance: SITAGLIPTIN PHOSPHATE
     Indication: TYPE 2 DIABETES MELLITUS
     Route: 048
  4. ACARBOSE. [Concomitant]
     Active Substance: ACARBOSE
     Indication: TYPE 2 DIABETES MELLITUS
     Route: 048

REACTIONS (10)
  - Lung disorder [Unknown]
  - Myositis [Unknown]
  - Anorectal disorder [Unknown]
  - Urinary retention [Unknown]
  - Autoimmune disorder [Unknown]
  - Rhabdomyolysis [Recovering/Resolving]
  - Bladder disorder [Unknown]
  - Spinal cord infarction [Unknown]
  - Neurological symptom [Unknown]
  - Monoplegia [Unknown]

NARRATIVE: CASE EVENT DATE: 2020
